FAERS Safety Report 9456794 (Version 3)
Quarter: 2013Q4

REPORT INFORMATION
  Report Type: Spontaneous
  Country: US (occurrence: US)
  Receive Date: 20130813
  Receipt Date: 20131004
  Transmission Date: 20140711
  Serious: Yes (Death, Other)
  Sender: FDA-Public Use
  Company Number: US-AMGEN-USASP2013056017

PATIENT
  Age: 60 Year
  Sex: Female
  Weight: 82.54 kg

DRUGS (29)
  1. PROLIA [Suspect]
     Indication: OSTEOPOROSIS POSTMENOPAUSAL
     Dosage: 60 MG, UNK
     Route: 058
     Dates: start: 20130307
  2. LEFLUNOMIDE [Concomitant]
     Dosage: 20 MG, QD
     Route: 048
     Dates: start: 20100429
  3. HYDROXYCHLOROQUINE [Concomitant]
     Dosage: 200 MG, QD, 2
     Route: 048
     Dates: start: 201204
  4. SULFASALAZINE [Concomitant]
     Dosage: 500 MG, BID
     Route: 048
     Dates: start: 201301
  5. PREDNISONE [Concomitant]
     Dosage: 14 MG, QD
     Route: 048
  6. COZAAR [Concomitant]
     Dosage: 5 MG, QD 2
     Route: 048
  7. AMMONIUM LACTATE [Concomitant]
     Dosage: UNK UNK, BID
     Route: 061
  8. LASIX                              /00032601/ [Concomitant]
     Dosage: 40 MG, TID
     Route: 048
  9. POTASSIUM CHLORIDE [Concomitant]
     Dosage: 10 MEQ, UNK
     Route: 048
  10. ANUCORT-HC [Concomitant]
     Dosage: 25 MG, UNK
  11. LANTUS [Concomitant]
     Dosage: 20 UNITS PER ML
     Route: 058
  12. APIDRA [Concomitant]
     Dosage: 25 UNIT, QD
     Route: 058
  13. CREON [Concomitant]
     Dosage: 25000 UNIT, UNK
  14. BENTYL [Concomitant]
     Dosage: 10 MG, AS NECESSARY
     Route: 048
  15. CYMBALTA [Concomitant]
     Dosage: 60 MG, QH
     Route: 048
  16. FISH OIL [Concomitant]
     Dosage: UNK UNK, QD
     Route: 048
  17. ASPIRIN [Concomitant]
     Dosage: 81 MG, QD
     Route: 048
  18. D-3 [Concomitant]
     Dosage: 5000 IU, QD
     Route: 048
  19. METANX [Concomitant]
     Dosage: UNK UNK, QD
     Route: 048
  20. NASALCROM [Concomitant]
     Dosage: UNK UNK, AS NECESSARY
  21. OXYCODONE [Concomitant]
     Dosage: 10 MG, QID
     Route: 048
  22. DURAGESIC                          /00174601/ [Concomitant]
     Dosage: 37 MUG, UNK
     Route: 062
  23. PREVACID [Concomitant]
     Dosage: 30 MG, QD 2
     Route: 048
  24. LORATADINE [Concomitant]
     Dosage: 10 MG, AS NECESSARY
  25. GAS X [Concomitant]
     Dosage: AS125 MG, AS NECESSARY
  26. GRALISE [Concomitant]
     Dosage: 1800 MG, QD
     Route: 048
  27. MAG OXIDE [Concomitant]
     Dosage: 400 MG, UNK
     Route: 048
  28. SPIRONOLACTONE [Concomitant]
     Dosage: 25 MG, QD
     Route: 048
  29. LANSOPRAZOLE [Concomitant]
     Dosage: 30 MG, QD
     Route: 048

REACTIONS (8)
  - Death [Fatal]
  - Renal disorder [Unknown]
  - Oedema [Unknown]
  - Insomnia [Unknown]
  - Burning sensation [Unknown]
  - Paraesthesia [Unknown]
  - Pain [Unknown]
  - Neuropathy peripheral [Unknown]
